FAERS Safety Report 6149802-4 (Version None)
Quarter: 2009Q2

REPORT INFORMATION
  Report Type: 
  Country: None (occurrence: None)
  Receive Date: 20090409
  Receipt Date: 20090403
  Transmission Date: 20091009
  Serious: Yes (Other)
  Sender: FDA-Public Use
  Company Number: AU-AVENTIS-200913499GDDC

PATIENT
  Age: 63 Year
  Sex: Female

DRUGS (8)
  1. ARAVA [Suspect]
     Indication: RHEUMATOID ARTHRITIS
     Route: 048
     Dates: start: 20070516, end: 20081219
  2. ARAVA [Suspect]
     Route: 048
     Dates: start: 20090206
  3. MOBIC [Concomitant]
     Indication: RHEUMATOID ARTHRITIS
     Dosage: DOSE: UNK
  4. NATRILIX                           /00340101/ [Concomitant]
     Indication: HYPERTENSION
     Dosage: DOSE: UNK
  5. ATACAND [Concomitant]
     Indication: HYPERTENSION
     Dosage: DOSE: UNK
  6. METFORMIN HCL [Concomitant]
     Dosage: DOSE: UNK
  7. LIPITOR [Concomitant]
     Dosage: DOSE: UNK
  8. RANI [Concomitant]
     Dosage: DOSE: UNK

REACTIONS (5)
  - ANOREXIA [None]
  - FATIGUE [None]
  - LABORATORY TEST ABNORMAL [None]
  - NAUSEA [None]
  - RENAL FAILURE [None]
